FAERS Safety Report 10446264 (Version 2)
Quarter: 2014Q4

REPORT INFORMATION
  Report Type: Spontaneous
  Country: GB (occurrence: GB)
  Receive Date: 20140911
  Receipt Date: 20141003
  Transmission Date: 20150528
  Serious: Yes (Other)
  Sender: FDA-Public Use
  Company Number: GB-AMGEN-GBRSP2014068257

PATIENT
  Age: 72 Year
  Sex: Male

DRUGS (12)
  1. EZETIMIBE. [Concomitant]
     Active Substance: EZETIMIBE
     Dosage: 10 UNK, UNK
  2. IVABRADINE [Concomitant]
     Active Substance: IVABRADINE
     Dosage: 5 UNK, UNK
  3. ATORVASTATIN [Concomitant]
     Active Substance: ATORVASTATIN
     Dosage: 40 UNK, UNK
  4. NICORANDIL [Concomitant]
     Active Substance: NICORANDIL
     Dosage: 20 UNK, UNK
  5. PREDNISOLONE. [Concomitant]
     Active Substance: PREDNISOLONE
     Dosage: 5 UNK, QD
  6. ALFACALCIDOL [Concomitant]
     Active Substance: ALFACALCIDOL
     Dosage: 2 MUG, UNK
  7. PHOSLO [Concomitant]
     Active Substance: CALCIUM ACETATE
     Dosage: 1 UNK, QD
  8. GTN [Concomitant]
     Active Substance: NITROGLYCERIN
  9. ARANESP [Suspect]
     Active Substance: DARBEPOETIN ALFA
     Indication: CHRONIC KIDNEY DISEASE
     Dosage: 50 MUG, FORTNIGHTLY
     Route: 065
     Dates: start: 2010
  10. CARVEDILOL. [Concomitant]
     Active Substance: CARVEDILOL
     Dosage: 6.25 UNK, UNK
  11. ASPIRIN                            /00002701/ [Concomitant]
     Active Substance: ASPIRIN
     Dosage: 75 UNK, UNK
  12. FOLIC ACID. [Concomitant]
     Active Substance: FOLIC ACID
     Dosage: 5 UNK, UNK

REACTIONS (7)
  - Red blood cell count decreased [Unknown]
  - Neutrophil count decreased [Unknown]
  - No therapeutic response [Unknown]
  - Drug ineffective [Unknown]
  - Reticulocyte count decreased [Unknown]
  - Haemoglobin decreased [Unknown]
  - Lymphocyte count decreased [Unknown]

NARRATIVE: CASE EVENT DATE: 2010
